FAERS Safety Report 7637213-1 (Version None)
Quarter: 2011Q3

REPORT INFORMATION
  Report Type: 
  Country: None (occurrence: None)
  Receive Date: 20110726
  Receipt Date: 20110715
  Transmission Date: 20111222
  Serious: Yes (Other)
  Sender: FDA-Public Use
  Company Number: PHHY2011JP62335

PATIENT
  Age: 21 Year
  Sex: Female

DRUGS (1)
  1. NEORAL [Suspect]
     Indication: GLOMERULONEPHRITIS MEMBRANOPROLIFERATIVE
     Dosage: UNK UKN, UNK
     Route: 048

REACTIONS (1)
  - ANGIOPATHY [None]
